FAERS Safety Report 7647163-2 (Version None)
Quarter: 2011Q3

REPORT INFORMATION
  Report Type: 
  Country: None (occurrence: None)
  Receive Date: 20110801
  Receipt Date: 20110721
  Transmission Date: 20111222
  Serious: Yes (Other)
  Sender: FDA-Public Use
  Company Number: US-ROCHE-743236

PATIENT
  Sex: Female
  Weight: 46.3 kg

DRUGS (5)
  1. LOMOTIL [Concomitant]
  2. IRON SUPPLEMENT [Concomitant]
  3. ACCUTANE [Suspect]
     Indication: ACNE
     Route: 065
     Dates: start: 19830101, end: 19831201
  4. ACCUTANE [Suspect]
     Route: 065
     Dates: start: 19850101, end: 19860101
  5. VITAMIN B-12 [Concomitant]

REACTIONS (7)
  - CROHN'S DISEASE [None]
  - DEPRESSION [None]
  - INTESTINAL OBSTRUCTION [None]
  - GASTROINTESTINAL INJURY [None]
  - HAEMORRHOIDS [None]
  - INFLAMMATORY BOWEL DISEASE [None]
  - COLONIC POLYP [None]
